FAERS Safety Report 25759417 (Version 1)
Quarter: 2025Q3

REPORT INFORMATION
  Report Type: Report from Study
  Country: US (occurrence: US)
  Receive Date: 20250904
  Receipt Date: 20250904
  Transmission Date: 20251020
  Serious: Yes (Other)
  Sender: SUNOVION
  Company Number: US-SMPA-2025SPA011292

PATIENT
  Age: 72 Year
  Sex: Male

DRUGS (2)
  1. ORGOVYX [Suspect]
     Active Substance: RELUGOLIX
     Indication: Prostate cancer
     Route: 048
  2. ERLEADA [Concomitant]
     Active Substance: APALUTAMIDE

REACTIONS (2)
  - Gastroenteritis salmonella [Unknown]
  - Incorrect dose administered [Recovered/Resolved]
